FAERS Safety Report 9592493 (Version 1)
Quarter: 2013Q4

REPORT INFORMATION
  Report Type: Spontaneous
  Country: FR (occurrence: FR)
  Receive Date: 20131004
  Receipt Date: 20131004
  Transmission Date: 20140711
  Serious: Yes (Disabling)
  Sender: FDA-Public Use
  Company Number: FR-009507513-1309FRA011936

PATIENT
  Age: 35 Year
  Sex: Female

DRUGS (1)
  1. CYCLEANE 20 [Suspect]
     Indication: CONTRACEPTION
     Dosage: UNK
     Route: 048
     Dates: start: 2008, end: 201303

REACTIONS (2)
  - Pulmonary embolism [Recovered/Resolved with Sequelae]
  - Cor pulmonale chronic [Recovered/Resolved with Sequelae]
